FAERS Safety Report 6548710-4 (Version None)
Quarter: 2010Q1

REPORT INFORMATION
  Report Type: 
  Country: None (occurrence: None)
  Receive Date: 20100124
  Receipt Date: 20091022
  Transmission Date: 20100710
  Serious: No
  Sender: FDA-Public Use
  Company Number: US-ALLERGAN-0914559US

PATIENT
  Sex: Female

DRUGS (3)
  1. RESTASIS [Suspect]
     Indication: DRY EYE
     Dosage: 1 GTT, QPM
     Route: 047
     Dates: start: 20091018, end: 20091018
  2. RESTASIS [Suspect]
     Dosage: 1 GTT, BID
     Route: 047
     Dates: start: 20091019, end: 20091019
  3. FLUOROMETHOLONE [Concomitant]
     Indication: EYE INFLAMMATION
     Route: 047

REACTIONS (3)
  - OCULAR HYPERAEMIA [None]
  - PHOTOPHOBIA [None]
  - VISION BLURRED [None]
